FAERS Safety Report 4295509-8 (Version None)
Quarter: 2004Q1

REPORT INFORMATION
  Report Type: 
  Country: None (occurrence: None)
  Receive Date: 20040216
  Receipt Date: 20030714
  Transmission Date: 20041129
  Serious: No
  Sender: FDA-Public Use
  Company Number: US-GLAXOSMITHKLINE-A0416641A

PATIENT
  Sex: Male

DRUGS (3)
  1. PAXIL [Suspect]
     Indication: DEPRESSION
     Dosage: 60MG PER DAY
     Route: 048
     Dates: end: 20030601
  2. VALIUM [Concomitant]
  3. DIAZEPAM [Concomitant]

REACTIONS (6)
  - AGGRESSION [None]
  - CRYING [None]
  - DISTURBANCE IN ATTENTION [None]
  - MEMORY IMPAIRMENT [None]
  - PARAESTHESIA [None]
  - VISUAL DISTURBANCE [None]
